FAERS Safety Report 22217382 (Version 1)
Quarter: 2023Q2

REPORT INFORMATION
  Report Type: Spontaneous
  Country: JP (occurrence: JP)
  Receive Date: 20230417
  Receipt Date: 20230417
  Transmission Date: 20230721
  Serious: No
  Sender: FDA-Public Use
  Company Number: JP-ALKEM LABORATORIES LIMITED-JP-ALKEM-2022-11464

PATIENT
  Age: 26 Year
  Sex: Female

DRUGS (3)
  1. ARIPIPRAZOLE [Interacting]
     Active Substance: ARIPIPRAZOLE
     Indication: Schizophrenia
     Dosage: 24 MG/D, QD
     Route: 048
  2. PAROXETINE [Interacting]
     Active Substance: PAROXETINE
     Indication: Schizophrenia
     Dosage: 10 MG/D, QD
     Route: 065
  3. PAROXETINE [Interacting]
     Active Substance: PAROXETINE
     Dosage: 20 MG/D, QD
     Route: 065

REACTIONS (1)
  - Drug interaction [Unknown]
